FAERS Safety Report 20691369 (Version 3)
Quarter: 2024Q3

REPORT INFORMATION
  Report Type: Report from Study
  Country: FR (occurrence: FR)
  Receive Date: 20220408
  Receipt Date: 20240709
  Transmission Date: 20241016
  Serious: Yes (Hospitalization)
  Sender: IPSEN
  Company Number: FR-IPSEN Group, Research and Development-2013-1137

PATIENT
  Age: 15 Year
  Sex: Male
  Weight: 47.7 kg

DRUGS (7)
  1. INCRELEX [Suspect]
     Active Substance: MECASERMIN
     Indication: Growth failure
     Route: 058
     Dates: start: 20110627
  2. INCRELEX [Suspect]
     Active Substance: MECASERMIN
     Indication: Off label use
     Dosage: 0.04 MG/KG = 40 UG/KG
     Route: 058
     Dates: start: 20090626, end: 20090719
  3. INCRELEX [Suspect]
     Active Substance: MECASERMIN
     Indication: Primary insulin like growth factor-1 deficiency
     Dosage: 0.08 MG/KG = 80 UG/KG
     Route: 058
     Dates: start: 20090720, end: 20091025
  4. INCRELEX [Suspect]
     Active Substance: MECASERMIN
     Dosage: 0.09 MG/KG = 90 UG/KG
     Route: 058
     Dates: start: 20091026, end: 20100715
  5. INCRELEX [Suspect]
     Active Substance: MECASERMIN
     Route: 058
     Dates: start: 20100715, end: 20101206
  6. INCRELEX [Suspect]
     Active Substance: MECASERMIN
     Route: 058
     Dates: start: 20101206, end: 20110310
  7. INCRELEX [Suspect]
     Active Substance: MECASERMIN
     Route: 058
     Dates: start: 20110310, end: 20110627

REACTIONS (4)
  - Testicular appendage torsion [Recovered/Resolved]
  - Testicular torsion [Recovered/Resolved]
  - Insulin-like growth factor increased [Recovered/Resolved]
  - Off label use [Unknown]

NARRATIVE: CASE EVENT DATE: 20120317
